FAERS Safety Report 18785312 (Version 4)
Quarter: 2022Q1

REPORT INFORMATION
  Report Type: Spontaneous
  Country: US (occurrence: US)
  Receive Date: 20210125
  Receipt Date: 20220310
  Transmission Date: 20220423
  Serious: No
  Sender: FDA-Public Use
  Company Number: US-PFIZER INC-2021041377

PATIENT
  Age: 60 Year
  Sex: Female

DRUGS (3)
  1. XELJANZ [Suspect]
     Active Substance: TOFACITINIB CITRATE
     Indication: Rheumatoid arthritis
     Dosage: 10 MG, DAILY
     Route: 048
     Dates: start: 20201201
  2. XELJANZ [Suspect]
     Active Substance: TOFACITINIB CITRATE
     Dosage: UNK
     Route: 048
     Dates: start: 202102, end: 202103
  3. XELJANZ [Suspect]
     Active Substance: TOFACITINIB CITRATE
     Dosage: 5 MG, 2X/DAY
     Route: 048
     Dates: start: 20210405

REACTIONS (17)
  - Therapeutic product effect incomplete [Unknown]
  - Off label use [Unknown]
  - Product dose omission issue [Unknown]
  - Intentional product misuse [Unknown]
  - Therapeutic response unexpected [Unknown]
  - Insomnia [Recovered/Resolved]
  - Feeling jittery [Unknown]
  - Hunger [Unknown]
  - Acne cystic [Unknown]
  - Condition aggravated [Unknown]
  - Arthralgia [Unknown]
  - Joint swelling [Recovering/Resolving]
  - Depression [Not Recovered/Not Resolved]
  - Pain [Unknown]
  - COVID-19 [Unknown]
  - Pyrexia [Unknown]
  - Cough [Unknown]

NARRATIVE: CASE EVENT DATE: 20220112
